FAERS Safety Report 23361254 (Version 3)
Quarter: 2025Q1

REPORT INFORMATION
  Report Type: Spontaneous
  Country: US (occurrence: US)
  Receive Date: 20240103
  Receipt Date: 20250212
  Transmission Date: 20250408
  Serious: No
  Sender: SANOFI AVENTIS
  Company Number: US-SA-SAC20231229000634

PATIENT
  Age: 58 Year
  Sex: Female

DRUGS (1)
  1. DUPIXENT [Suspect]
     Active Substance: DUPILUMAB
     Indication: Eosinophilic oesophagitis
     Dosage: 300 MG, QW
     Route: 058
     Dates: start: 20231025

REACTIONS (17)
  - Influenza [Unknown]
  - Nasal congestion [Unknown]
  - Throat tightness [Recovered/Resolved]
  - Regurgitation [Recovered/Resolved]
  - Vomiting [Recovered/Resolved]
  - Dysphagia [Recovered/Resolved]
  - Ventricular extrasystoles [Unknown]
  - Palpitations [Recovered/Resolved]
  - Hiccups [Unknown]
  - Blood thyroid stimulating hormone increased [Recovered/Resolved]
  - Thyroid mass [Unknown]
  - Rhinorrhoea [Recovered/Resolved]
  - Oesophageal hypomotility [Not Recovered/Not Resolved]
  - Abdominal pain [Recovered/Resolved]
  - Abdominal distension [Not Recovered/Not Resolved]
  - Gastrointestinal microorganism overgrowth [Unknown]
  - Pharyngeal swelling [Recovered/Resolved]

NARRATIVE: CASE EVENT DATE: 20230101
